FAERS Safety Report 13510593 (Version 3)
Quarter: 2017Q4

REPORT INFORMATION
  Report Type: Spontaneous
  Country: US (occurrence: US)
  Receive Date: 20170503
  Receipt Date: 20171009
  Transmission Date: 20180320
  Serious: Yes (Other)
  Sender: FDA-Public Use
  Company Number: US-SA-2017SA078306

PATIENT
  Age: 23 Year
  Sex: Female

DRUGS (2)
  1. SOLOSTAR [Suspect]
     Active Substance: DEVICE
     Indication: LATENT AUTOIMMUNE DIABETES IN ADULTS
  2. LANTUS SOLOSTAR [Suspect]
     Active Substance: INSULIN GLARGINE
     Indication: LATENT AUTOIMMUNE DIABETES IN ADULTS
     Dosage: 10-30 UNITS A DAY, 25 UNITS
     Route: 051
     Dates: start: 2016

REACTIONS (3)
  - Impaired gastric emptying [Unknown]
  - Vomiting [Unknown]
  - Blood glucose abnormal [Unknown]
